FAERS Safety Report 7482853-6 (Version None)
Quarter: 2011Q2

REPORT INFORMATION
  Report Type: 
  Country: None (occurrence: None)
  Receive Date: 20110516
  Receipt Date: 20110511
  Transmission Date: 20111010
  Serious: Yes (Other)
  Sender: FDA-Public Use
  Company Number: US-PFIZER INC-2011101710

PATIENT
  Sex: Female
  Weight: 57 kg

DRUGS (3)
  1. PREMPRO [Suspect]
     Indication: MENOPAUSAL SYMPTOMS
     Dosage: 0.625/25 MG, DAILY
     Route: 048
  2. PREMPRO [Suspect]
     Indication: HOT FLUSH
     Dosage: 1 DF, 2X/DAY
     Route: 048
  3. PREMPRO [Suspect]
     Indication: NIGHT SWEATS
     Dosage: 1 DF, 1X/DAY
     Route: 048

REACTIONS (7)
  - FATIGUE [None]
  - HIRSUTISM [None]
  - ARTHRITIS [None]
  - BONE PAIN [None]
  - ARTHRALGIA [None]
  - INFLUENZA [None]
  - MALAISE [None]
